FAERS Safety Report 17072856 (Version 1)
Quarter: 2019Q4

REPORT INFORMATION
  Report Type: Spontaneous
  Country: US (occurrence: US)
  Receive Date: 20191125
  Receipt Date: 20191125
  Transmission Date: 20200122
  Serious: Yes (Other)
  Sender: FDA-Public Use
  Company Number: US-NOVOPROD-697668

PATIENT
  Age: 77 Year
  Sex: Male

DRUGS (1)
  1. NOVOLOG [Suspect]
     Active Substance: INSULIN ASPART
     Indication: PRODUCT USED FOR UNKNOWN INDICATION
     Dosage: 25-35 UNITS ONCE A DAY
     Route: 058

REACTIONS (9)
  - Blood glucose increased [Not Recovered/Not Resolved]
  - Knee arthroplasty [Unknown]
  - Obesity [Unknown]
  - Muscle spasms [Unknown]
  - Back disorder [Unknown]
  - Musculoskeletal discomfort [Unknown]
  - Blood urine present [Unknown]
  - Liver disorder [Unknown]
  - Renal disorder [Unknown]

NARRATIVE: CASE EVENT DATE: 2014
